FAERS Safety Report 7356601-4 (Version None)
Quarter: 2011Q1

REPORT INFORMATION
  Report Type: 
  Country: None (occurrence: None)
  Receive Date: 20110316
  Receipt Date: 20110303
  Transmission Date: 20110831
  Serious: Yes (Other)
  Sender: FDA-Public Use
  Company Number: PHHY2011FR11408

PATIENT
  Sex: Female
  Weight: 54 kg

DRUGS (3)
  1. EXTAVIA [Suspect]
     Indication: MULTIPLE SCLEROSIS
     Dosage: 250 UG, QOD
     Route: 058
     Dates: start: 20090901, end: 20101201
  2. ACETAMINOPHEN [Concomitant]
  3. INIPOMP [Concomitant]

REACTIONS (3)
  - SKIN INFECTION [None]
  - SKIN DISCOLOURATION [None]
  - SKIN INDURATION [None]
